FAERS Safety Report 5490273-9 (Version None)
Quarter: 2007Q4

REPORT INFORMATION
  Report Type: 
  Country: None (occurrence: None)
  Receive Date: 20071015
  Receipt Date: 20070702
  Transmission Date: 20080405
  Serious: No
  Sender: FDA-Public Use
  Company Number: 2007SP002433

PATIENT
  Age: 48 Year
  Sex: Male
  Weight: 90.7194 kg

DRUGS (6)
  1. LUNESTA [Suspect]
     Indication: INSOMNIA
     Dosage: 3 MG; ORAL, 1.5 MG; PRN; ORAL
     Route: 048
     Dates: start: 20070501, end: 20070501
  2. LUNESTA [Suspect]
     Indication: INSOMNIA
     Dosage: 3 MG; ORAL, 1.5 MG; PRN; ORAL
     Route: 048
     Dates: start: 20070101, end: 20070629
  3. WELLBUTRIN [Suspect]
     Indication: ANXIETY
     Dosage: 10 MG; QD; ORAL
     Route: 048
     Dates: start: 20070501, end: 20070501
  4. WELLBUTRIN [Suspect]
     Indication: DEPRESSION
     Dosage: 10 MG; QD; ORAL
     Route: 048
     Dates: start: 20070501, end: 20070501
  5. SIMVASTATIN [Concomitant]
  6. LEXAPRO [Concomitant]

REACTIONS (1)
  - TREMOR [None]
